FAERS Safety Report 23263108 (Version 1)
Quarter: 2023Q4

REPORT INFORMATION
  Report Type: Spontaneous
  Country: US (occurrence: US)
  Receive Date: 20231205
  Receipt Date: 20231205
  Transmission Date: 20240110
  Serious: No
  Sender: FDA-Public Use
  Company Number: US-HALOZYME THERAPEUTICS, INC.-2023-US-TX -01816

PATIENT

DRUGS (1)
  1. XYOSTED [Suspect]
     Active Substance: TESTOSTERONE ENANTHATE
     Dosage: 50 MILLIGRAM, Q 1 WK
     Route: 058

REACTIONS (6)
  - Arthralgia [None]
  - Gait inability [None]
  - Fatigue [None]
  - Fluid retention [None]
  - Pain [None]
  - Pain [None]
